FAERS Safety Report 8884608 (Version 2)
Quarter: 2012Q4

REPORT INFORMATION
  Report Type: 
  Country: PL (occurrence: PL)
  Receive Date: 20121102
  Receipt Date: 20121213
  Transmission Date: 20130627
  Serious: Yes (Other)
  Sender: FDA-Public Use
  Company Number: PL-PFIZER INC-2012255814

PATIENT
  Age: 60 Year
  Sex: Female
  Weight: 67 kg

DRUGS (9)
  1. SORTIS [Suspect]
     Indication: HYPERCHOLESTEROLAEMIA
     Dosage: 20 mg, 1x/day
     Route: 048
     Dates: start: 2006, end: 201209
  2. SORTIS [Suspect]
     Indication: HEART ATTACK
     Dosage: 40 mg, 1x/day
     Route: 048
     Dates: start: 20120926, end: 20120930
  3. SORTIS [Suspect]
     Indication: HYPERLIPIDAEMIA
  4. POLOCARD [Concomitant]
     Indication: CORONARY HEART DISEASE
     Dosage: 75 mg, 1x/day
     Dates: start: 2001
  5. POLOCARD [Concomitant]
     Indication: MYOCARDIAL INFARCTION
  6. PRESTARIUM [Concomitant]
     Indication: CORONARY HEART DISEASE
     Dosage: 5 mg, 1x/day
     Dates: start: 2001
  7. PRESTARIUM [Concomitant]
     Indication: MYOCARDIAL INFARCTION
  8. CONCOR [Concomitant]
     Indication: CORONARY HEART DISEASE
     Dosage: 5 mg, UNK
     Dates: start: 2001
  9. CONCOR [Concomitant]
     Indication: MYOCARDIAL INFARCTION

REACTIONS (3)
  - Rash macular [Recovered/Resolved]
  - Joint swelling [Recovered/Resolved]
  - Oedema peripheral [Recovered/Resolved]
